FAERS Safety Report 17053405 (Version 1)
Quarter: 2019Q4

REPORT INFORMATION
  Report Type: Spontaneous
  Country: US (occurrence: US)
  Receive Date: 20191120
  Receipt Date: 20191120
  Transmission Date: 20200122
  Serious: Yes (Death)
  Sender: FDA-Public Use
  Company Number: None

PATIENT
  Age: 21 Year
  Weight: 90 kg

DRUGS (2)
  1. DULOXETINE DR [Suspect]
     Active Substance: DULOXETINE
     Indication: DEPRESSION
     Route: 048
     Dates: start: 20180820, end: 20180910
  2. ZOLPIDEM [Suspect]
     Active Substance: ZOLPIDEM TARTRATE
     Indication: INSOMNIA
     Route: 048
     Dates: start: 20180820, end: 20180910

REACTIONS (2)
  - Completed suicide [None]
  - Encephalopathy [None]

NARRATIVE: CASE EVENT DATE: 20180910
